FAERS Safety Report 8238106-1 (Version None)
Quarter: 2012Q1

REPORT INFORMATION
  Report Type: 
  Country: None (occurrence: None)
  Receive Date: 20120327
  Receipt Date: 20120322
  Transmission Date: 20120608
  Serious: Yes (Life-Threatening)
  Sender: FDA-Public Use
  Company Number: JP-GLAXOSMITHKLINE-B0791373A

PATIENT
  Age: 56 Year
  Sex: Female

DRUGS (5)
  1. ROHYPNOL [Concomitant]
     Route: 065
  2. ANTIDEPRESSANT [Concomitant]
     Indication: SUICIDE ATTEMPT
  3. LAMICTAL [Suspect]
     Indication: PRODUCT USED FOR UNKNOWN INDICATION
     Dosage: 100MG PER DAY
     Route: 048
     Dates: start: 20111201
  4. QUETIAPINE FUMARATE [Concomitant]
  5. LITHIUM CARBONATE [Concomitant]

REACTIONS (6)
  - HYPOALBUMINAEMIA [None]
  - HYPOTHERMIA [None]
  - LOSS OF CONSCIOUSNESS [None]
  - CARDIO-RESPIRATORY ARREST [None]
  - PANCYTOPENIA [None]
  - HYPOGLYCAEMIA [None]
